FAERS Safety Report 12615373 (Version 1)
Quarter: 2016Q3

REPORT INFORMATION
  Report Type: Spontaneous
  Country: US (occurrence: US)
  Receive Date: 20160802
  Receipt Date: 20160802
  Transmission Date: 20161109
  Serious: Yes (Hospitalization, Other)
  Sender: FDA-Public Use
  Company Number: US-SMITH AND NEPHEW, INC-2016SMT00568

PATIENT
  Age: 45 Year
  Sex: Male
  Weight: 136.5 kg

DRUGS (7)
  1. CIPRO [Concomitant]
     Active Substance: CIPROFLOXACIN HYDROCHLORIDE
     Dosage: 500 MG, 2X/DAY
     Dates: start: 2016, end: 20160705
  2. REGRANEX [Suspect]
     Active Substance: BECAPLERMIN
     Indication: DECUBITUS ULCER
     Dosage: UNK, 1X/DAY
     Route: 061
     Dates: start: 20160629, end: 20160702
  3. REGRANEX [Suspect]
     Active Substance: BECAPLERMIN
     Indication: INCISION SITE COMPLICATION
     Dosage: UNK, 1X/DAY
     Route: 061
     Dates: start: 20160705, end: 20160707
  4. LISINOPRIL. [Concomitant]
     Active Substance: LISINOPRIL
     Dosage: 10 MG, 1X/DAY
  5. LASIX [Concomitant]
     Active Substance: FUROSEMIDE
     Indication: SWELLING
     Dosage: 40 MG, 2X/DAY
  6. POTASSIUM [Concomitant]
     Active Substance: POTASSIUM
     Dosage: 75 MEQ, 1X/DAY
  7. TRAMADOL. [Concomitant]
     Active Substance: TRAMADOL
     Indication: PAIN
     Dosage: 100 MG, 2X/DAY

REACTIONS (12)
  - Staphylococcus test positive [Recovered/Resolved]
  - Leg amputation [Recovering/Resolving]
  - Pain [Recovered/Resolved]
  - Retching [Recovered/Resolved]
  - Osteomyelitis [None]
  - Nausea [Recovered/Resolved]
  - Diarrhoea [Recovered/Resolved]
  - Decreased appetite [Recovered/Resolved]
  - Activities of daily living impaired [Unknown]
  - Sepsis [None]
  - Condition aggravated [Recovered/Resolved]
  - Wound complication [Recovered/Resolved]

NARRATIVE: CASE EVENT DATE: 2016
